FAERS Safety Report 25944832 (Version 1)
Quarter: 2025Q4

REPORT INFORMATION
  Report Type: Spontaneous
  Country: US (occurrence: US)
  Receive Date: 20251021
  Receipt Date: 20251021
  Transmission Date: 20260117
  Serious: No
  Sender: Phathom Pharmaceuticals
  Company Number: US-PHATHOM PHARMACEUTICALS INC.-2025PHT02621

PATIENT
  Age: 73 Year
  Sex: Female

DRUGS (8)
  1. VOQUEZNA [Suspect]
     Active Substance: VONOPRAZAN FUMARATE
     Indication: Anastomotic ulcer
     Dosage: 20 MG, 1X/DAY
     Route: 048
     Dates: start: 20250825
  2. TRAMADOL [Concomitant]
     Active Substance: TRAMADOL
  3. XDEMVY [Concomitant]
     Active Substance: LOTILANER
  4. LIPITOR [Concomitant]
     Active Substance: ATORVASTATIN CALCIUM
  5. VALIUM [Concomitant]
     Active Substance: DIAZEPAM
  6. RINVOQ [Concomitant]
     Active Substance: UPADACITINIB
  7. LISINOPRIL [Concomitant]
     Active Substance: LISINOPRIL
  8. LEVOTHYROXINE [Concomitant]
     Active Substance: LEVOTHYROXINE

REACTIONS (4)
  - Balance disorder [Unknown]
  - Dizziness [Unknown]
  - Diarrhoea [Unknown]
  - Off label use [Unknown]

NARRATIVE: CASE EVENT DATE: 20250101
